FAERS Safety Report 5333162-2 (Version None)
Quarter: 2007Q2

REPORT INFORMATION
  Report Type: 
  Country: None (occurrence: None)
  Receive Date: 20070524
  Receipt Date: 20070516
  Transmission Date: 20071010
  Serious: Yes (Other)
  Sender: FDA-Public Use
  Company Number: PHBS2006IE19853

PATIENT
  Age: 12 Year
  Sex: Male

DRUGS (6)
  1. SIMULECT [Suspect]
     Indication: RENAL TRANSPLANT
     Dosage: 20 MG, ONCE/SINGLE
     Route: 042
     Dates: start: 20061125, end: 20061125
  2. CELLCEPT [Suspect]
     Indication: RENAL TRANSPLANT
     Dates: start: 20061204
  3. PROGRAF [Concomitant]
  4. STEROIDS NOS [Concomitant]
  5. ANTIBIOTICS [Concomitant]
  6. RANITIDINE [Concomitant]

REACTIONS (7)
  - ANGIOPATHY [None]
  - C-REACTIVE PROTEIN INCREASED [None]
  - COMPLICATIONS OF TRANSPLANT SURGERY [None]
  - LIFE SUPPORT [None]
  - PULMONARY OEDEMA [None]
  - PYREXIA [None]
  - THROMBOTIC MICROANGIOPATHY [None]
